FAERS Safety Report 10039146 (Version 1)
Quarter: 2014Q1

REPORT INFORMATION
  Report Type: Spontaneous
  Country: PH (occurrence: PH)
  Receive Date: 20140326
  Receipt Date: 20140326
  Transmission Date: 20141002
  Serious: Yes (Hospitalization, Other)
  Sender: FDA-Public Use
  Company Number: PHHY2014PH033471

PATIENT
  Age: 54 Year
  Sex: Male

DRUGS (6)
  1. TEGRETOL [Suspect]
     Dosage: UNK UKN, UNK
  2. AMLODIPINE [Concomitant]
     Dosage: 5 MG, DAILY
  3. EPOETIN [Concomitant]
     Dosage: 5000 U, THREE TIMES IN A WEEK
  4. HUMULIN 70/30 [Concomitant]
     Dosage: 34 U, DAILY (20 UNITS IN AM AND 14 UNITS IN PM)
  5. CALCITRIOL [Concomitant]
     Dosage: 0.25 MG, QOD
  6. FEBUXOSTAT [Concomitant]
     Dosage: 40 MG EVERY MONDAY, WEDNESDAY AND FRIDAY

REACTIONS (18)
  - Cardiac failure congestive [Recovering/Resolving]
  - Pulmonary congestion [Recovering/Resolving]
  - Respiratory distress [Unknown]
  - Dyspnoea [Unknown]
  - Orthopnoea [Unknown]
  - Dry mouth [Unknown]
  - Thirst [Unknown]
  - Sepsis [Unknown]
  - Tachycardia [Unknown]
  - Chills [Unknown]
  - Pyrexia [Unknown]
  - Type 1 diabetes mellitus [Unknown]
  - Diabetic nephropathy [Unknown]
  - Hypertensive heart disease [Unknown]
  - Hypertensive nephropathy [Unknown]
  - Renal failure chronic [Unknown]
  - Infection [Unknown]
  - Drug dispensing error [Unknown]
